FAERS Safety Report 7744374-2 (Version None)
Quarter: 2011Q3

REPORT INFORMATION
  Report Type: 
  Country: None (occurrence: None)
  Receive Date: 20110912
  Receipt Date: 20110907
  Transmission Date: 20111222
  Serious: Yes (Other)
  Sender: FDA-Public Use
  Company Number: US-PFIZER INC-2011191823

PATIENT
  Sex: Female
  Weight: 83.447 kg

DRUGS (7)
  1. NEXIUM [Concomitant]
     Dosage: UNK DAILY
  2. CLOZAPINE [Concomitant]
     Indication: DEPRESSION
  3. PRISTIQ [Suspect]
     Indication: DEPRESSION
     Dosage: 50 MG, DAILY
  4. NORVASC [Concomitant]
     Indication: BLOOD PRESSURE ABNORMAL
     Dosage: 10 MG, 2X/DAY
  5. BUSPIN [Concomitant]
     Indication: ANXIETY
     Dosage: 1 MG, UNK
  6. CLOZAPINE [Concomitant]
     Indication: ANXIETY
     Dosage: UNK
  7. BUSPIN [Concomitant]
     Indication: DEPRESSION

REACTIONS (11)
  - SUICIDAL IDEATION [None]
  - OVERDOSE [None]
  - CEREBROVASCULAR ACCIDENT [None]
  - URINARY INCONTINENCE [None]
  - URINARY TRACT INFECTION [None]
  - ASTHMA [None]
  - BLADDER PAIN [None]
  - DEPRESSION [None]
  - RENAL DISORDER [None]
  - CHRONIC OBSTRUCTIVE PULMONARY DISEASE [None]
  - EMPHYSEMA [None]
